FAERS Safety Report 10010174 (Version 2)
Quarter: 2014Q1

REPORT INFORMATION
  Report Type: Spontaneous
  Country: US (occurrence: US)
  Receive Date: 20140312
  Receipt Date: 20140312
  Transmission Date: 20141002
  Serious: Yes (Other)
  Sender: FDA-Public Use
  Company Number: US-INCYTE CORPORATION-2013IN000997

PATIENT
  Age: 81 Year
  Sex: Female

DRUGS (13)
  1. JAKAFI [Suspect]
     Indication: MYELOFIBROSIS
     Dosage: 20 MG, BID
     Route: 048
     Dates: start: 20130423, end: 20130508
  2. JAKAFI [Suspect]
     Dosage: 10 MG, BID
     Route: 048
     Dates: start: 20130528
  3. ADDERALL [Concomitant]
  4. BUMEX [Concomitant]
  5. DESIPRAMINE [Concomitant]
  6. PREMARIN [Concomitant]
  7. SYNTHROID [Concomitant]
  8. WELLBUTRIN [Concomitant]
  9. CARDIZEM [Concomitant]
  10. KLOR-CON [Concomitant]
  11. RYTHMOL [Concomitant]
  12. DOXEPIN [Concomitant]
  13. XARELTO [Concomitant]

REACTIONS (8)
  - Platelet count decreased [Recovered/Resolved]
  - Asthenia [Recovered/Resolved]
  - Nausea [Unknown]
  - Fatigue [Unknown]
  - Depressed mood [Unknown]
  - Decreased appetite [Unknown]
  - Headache [Unknown]
  - Dizziness [Unknown]
